FAERS Safety Report 9258743 (Version 2)
Quarter: 2013Q2

REPORT INFORMATION
  Report Type: Spontaneous
  Country: US (occurrence: US)
  Receive Date: 20130426
  Receipt Date: 20130523
  Transmission Date: 20140414
  Serious: Yes (Other)
  Sender: FDA-Public Use
  Company Number: US-BAYER-2013-050411

PATIENT
  Age: 30 Year
  Sex: Female

DRUGS (1)
  1. MIRENA [Suspect]
     Indication: CONTRACEPTION
     Dosage: 20 MCG/24HR, CONT
     Route: 015
     Dates: start: 20120907, end: 20130319

REACTIONS (19)
  - Genital haemorrhage [None]
  - Device expulsion [None]
  - Uterine pain [None]
  - Abdominal pain [None]
  - Adnexa uteri pain [None]
  - Irritability [None]
  - Mood swings [None]
  - Abdominal discomfort [None]
  - Asthenia [None]
  - Hyperhidrosis [None]
  - Fatigue [None]
  - Feeling abnormal [None]
  - Sexual dysfunction [None]
  - Acne [None]
  - Headache [None]
  - Dizziness [None]
  - Abdominal pain lower [None]
  - Uterine cervical pain [None]
  - Palpitations [None]
